FAERS Safety Report 14736051 (Version 2)
Quarter: 2018Q3

REPORT INFORMATION
  Report Type: Spontaneous
  Country: CA (occurrence: CA)
  Receive Date: 20180409
  Receipt Date: 20180803
  Transmission Date: 20181010
  Serious: Yes (Other)
  Sender: FDA-Public Use
  Company Number: CA-SA-2018SA097868

PATIENT
  Age: 63 Year
  Sex: Female

DRUGS (12)
  1. METHOTREXATE. [Suspect]
     Active Substance: METHOTREXATE
     Indication: RHEUMATOID ARTHRITIS
     Dosage: 22.5 MG,QW
     Route: 048
     Dates: end: 201702
  2. LEFLUNOMIDE. [Suspect]
     Active Substance: LEFLUNOMIDE
     Dosage: 20 MG,QD
     Route: 048
  3. SULFASALAZINE. [Suspect]
     Active Substance: SULFASALAZINE
     Indication: RHEUMATOID ARTHRITIS
     Dosage: UNK UNK,UNK
     Route: 065
  4. ORENCIA [Suspect]
     Active Substance: ABATACEPT
     Dosage: UNK UNK,UNK
     Route: 065
  5. PREDNISONE. [Concomitant]
     Active Substance: PREDNISONE
     Dosage: TAPERING DOSE
  6. HYDROXYCHLOROQUINE [Suspect]
     Active Substance: HYDROXYCHLOROQUINE
     Dosage: 400 MG, QD
     Route: 048
     Dates: end: 201702
  7. ENBREL [Suspect]
     Active Substance: ETANERCEPT
     Indication: RHEUMATOID ARTHRITIS
     Dosage: UNK UNK,UNK
     Route: 065
  8. HUMIRA [Suspect]
     Active Substance: ADALIMUMAB
     Dosage: UNK UNK,UNK
     Route: 058
  9. CELEBREX [Concomitant]
     Active Substance: CELECOXIB
     Dosage: 200 MG,BID
     Route: 065
  10. ERGOCALCIFEROL. [Concomitant]
     Active Substance: ERGOCALCIFEROL
     Dosage: 4000 IU,QD
     Route: 065
  11. HYDROXYCHLOROQUINE PHOSPHATE [Concomitant]
     Active Substance: HYDROXYCHLOROQUINE DIPHOSPHATE
     Dosage: UNK UNK,UNK
     Route: 065
  12. XELJANZ [Concomitant]
     Active Substance: TOFACITINIB CITRATE
     Indication: RHEUMATOID ARTHRITIS
     Dosage: 5 MG,BID
     Route: 048
     Dates: start: 20170411

REACTIONS (14)
  - Bronchitis [Not Recovered/Not Resolved]
  - Interstitial lung disease [Unknown]
  - Rheumatoid arthritis [Unknown]
  - Stress [Unknown]
  - Drug ineffective [Unknown]
  - Drug intolerance [Unknown]
  - Osteoporosis [Unknown]
  - Influenza like illness [Unknown]
  - Nodule [Unknown]
  - Foot deformity [Unknown]
  - Drug hypersensitivity [Unknown]
  - Pain [Unknown]
  - Depression [Unknown]
  - Abdominal pain upper [Unknown]
